FAERS Safety Report 5926500-0 (Version None)
Quarter: 2008Q4

REPORT INFORMATION
  Report Type: 
  Country: None (occurrence: None)
  Receive Date: 20081022
  Receipt Date: 20081013
  Transmission Date: 20090506
  Serious: Yes (Hospitalization)
  Sender: FDA-Public Use
  Company Number: DE-ASTRAZENECA-2008PK02245

PATIENT
  Age: 31 Year
  Sex: Female

DRUGS (13)
  1. SEROQUEL [Suspect]
     Indication: SCHIZOAFFECTIVE DISORDER
     Route: 048
     Dates: start: 20051107, end: 20051109
  2. RISPERDAL [Interacting]
     Indication: SCHIZOAFFECTIVE DISORDER
     Route: 048
     Dates: start: 20051011, end: 20051115
  3. RISPERDAL [Interacting]
     Indication: SCHIZOPHRENIA
     Route: 048
     Dates: start: 20051011, end: 20051115
  4. RISPERDAL [Interacting]
     Dates: start: 20051017, end: 20051101
  5. RISPERDAL [Interacting]
     Dates: start: 20051017, end: 20051101
  6. RISPERDAL [Interacting]
     Dates: start: 20051102, end: 20051106
  7. RISPERDAL [Interacting]
     Dates: start: 20051102, end: 20051106
  8. RISPERDAL [Interacting]
     Dates: start: 20051107, end: 20051109
  9. RISPERDAL [Interacting]
     Dates: start: 20051107, end: 20051109
  10. HALDOL [Concomitant]
     Dosage: DAILY DOSE: 6 MG MILLIGRAM(S) EVERY DAY
     Dates: start: 20051116
  11. HALDOL [Concomitant]
     Dates: start: 20051117, end: 20051120
  12. AKINETON [Concomitant]
     Dates: start: 20051117
  13. AKINETON [Concomitant]
     Dosage: DAILY DOSE: 8 MG MILLIGRAM(S) EVERY DAY
     Dates: start: 20051118, end: 20051123

REACTIONS (2)
  - DRUG INTERACTION [None]
  - LEUKOPENIA [None]
